FAERS Safety Report 16595077 (Version 2)
Quarter: 2019Q3

REPORT INFORMATION
  Report Type: Report from Study
  Country: US (occurrence: US)
  Receive Date: 20190718
  Receipt Date: 20190731
  Transmission Date: 20191004
  Serious: Yes (Hospitalization)
  Sender: FDA-Public Use
  Company Number: US-ACTELION-A-NJ2018-166576

PATIENT
  Age: 60 Year
  Sex: Male

DRUGS (1)
  1. OPSUMIT [Suspect]
     Active Substance: MACITENTAN
     Indication: PULMONARY ARTERIAL HYPERTENSION
     Dosage: 10 MG, QD
     Route: 048
     Dates: start: 20160108

REACTIONS (10)
  - Pneumonia [Recovered/Resolved]
  - Dyspnoea [Unknown]
  - Inflammation [Unknown]
  - Influenza [Not Recovered/Not Resolved]
  - Sinus disorder [Not Recovered/Not Resolved]
  - Productive cough [Unknown]
  - Nasopharyngitis [Not Recovered/Not Resolved]
  - Nasal disorder [Not Recovered/Not Resolved]
  - Hypersensitivity [Unknown]
  - Respiratory tract congestion [Unknown]

NARRATIVE: CASE EVENT DATE: 20180115
